FAERS Safety Report 5363628-0 (Version None)
Quarter: 2007Q2

REPORT INFORMATION
  Report Type: 
  Country: None (occurrence: None)
  Receive Date: 20070620
  Receipt Date: 20070611
  Transmission Date: 20071010
  Serious: Yes (Hospitalization)
  Sender: FDA-Public Use
  Company Number: FR-AMGEN-UK217664

PATIENT
  Sex: Male

DRUGS (3)
  1. ARANESP [Suspect]
     Route: 058
     Dates: start: 20070119
  2. LENALIDOMIDE [Suspect]
     Route: 048
     Dates: start: 20070116, end: 20070126
  3. AMLOR [Suspect]
     Route: 048

REACTIONS (6)
  - DEHYDRATION [None]
  - DIARRHOEA HAEMORRHAGIC [None]
  - GENERAL PHYSICAL HEALTH DETERIORATION [None]
  - INFECTION [None]
  - RENAL CYST [None]
  - SIGMOIDITIS [None]
